FAERS Safety Report 10481155 (Version 2)
Quarter: 2014Q3

REPORT INFORMATION
  Report Type: Spontaneous
  Country: US (occurrence: US)
  Receive Date: 20140929
  Receipt Date: 20140929
  Transmission Date: 20150326
  Serious: Yes (Death, Other)
  Sender: FDA-Public Use
  Company Number: US-BAYER-2014-064705

PATIENT
  Age: 71 Year
  Weight: 93.33 kg

DRUGS (1)
  1. STIVARGA [Suspect]
     Active Substance: REGORAFENIB
     Indication: COLON CANCER METASTATIC
     Dosage: 160 MG, QD
     Route: 048
     Dates: start: 20140102, end: 20140325

REACTIONS (8)
  - Fatigue [Not Recovered/Not Resolved]
  - Suicidal ideation [None]
  - Palmar-plantar erythrodysaesthesia syndrome [Not Recovered/Not Resolved]
  - Skin exfoliation [Not Recovered/Not Resolved]
  - Skin fissures [Not Recovered/Not Resolved]
  - Colon cancer metastatic [Fatal]
  - Pain in extremity [Not Recovered/Not Resolved]
  - Urinary retention [None]
